FAERS Safety Report 16325627 (Version 1)
Quarter: 2019Q2

REPORT INFORMATION
  Report Type: Spontaneous
  Country: US (occurrence: US)
  Receive Date: 20190516
  Receipt Date: 20190516
  Transmission Date: 20190711
  Serious: Yes (Other)
  Sender: FDA-Public Use
  Company Number: None

PATIENT
  Age: 50 Year
  Sex: Male
  Weight: 64.7 kg

DRUGS (3)
  1. OXYCODONE 10 MG Q4H [Concomitant]
     Dates: start: 20181025
  2. METHADONE [Suspect]
     Active Substance: METHADONE HYDROCHLORIDE
     Indication: PAIN
     Dosage: ?          OTHER ROUTE:VIA ENTERAL TUBE (PEG TUBE)?
     Dates: start: 20181025
  3. FLUCONAZOLE 200 MG DAILY [Concomitant]
     Dates: start: 20190129

REACTIONS (4)
  - Miosis [None]
  - Respiratory acidosis [None]
  - Depressed level of consciousness [None]
  - Respiratory depression [None]

NARRATIVE: CASE EVENT DATE: 20190204
